FAERS Safety Report 16974115 (Version 2)
Quarter: 2020Q1

REPORT INFORMATION
  Report Type: Spontaneous
  Country: FR (occurrence: FR)
  Receive Date: 20191030
  Receipt Date: 20200108
  Transmission Date: 20200409
  Serious: Yes (Other)
  Sender: FDA-Public Use
  Company Number: FR-TEVA-2019-FR-1129334

PATIENT
  Age: 63 Year
  Sex: Male
  Weight: 79.5 kg

DRUGS (4)
  1. IMFINZI [Suspect]
     Active Substance: DURVALUMAB
     Indication: BRONCHIAL CARCINOMA
     Dosage: 10MG/KG PER 2 WEEKS
     Route: 041
     Dates: start: 20190508, end: 20190701
  2. CISPLATINE [Suspect]
     Active Substance: CISPLATIN
     Indication: BRONCHIAL CARCINOMA
     Dosage: 50 MG/M2 3 TO 6 WEEKS
     Route: 041
     Dates: start: 20190103
  3. IMFINZI [Suspect]
     Active Substance: DURVALUMAB
     Indication: BRONCHIAL CARCINOMA
     Dosage: 10MG/KG PER 2 WEEKS
     Route: 041
     Dates: start: 20190823
  4. VINORELBINE (DITARTRATE DE) [Suspect]
     Active Substance: VINORELBINE TARTRATE
     Indication: BRONCHIAL CARCINOMA
     Dosage: 25 MG/M2 ON 1ST AND 5TH DAY EVERY 3 WEEKS
     Route: 041
     Dates: start: 20190103, end: 20190417

REACTIONS (4)
  - Dyspnoea [Recovering/Resolving]
  - Dry mouth [Not Recovered/Not Resolved]
  - Peripheral sensory neuropathy [Not Recovered/Not Resolved]
  - Xerophthalmia [Not Recovered/Not Resolved]

NARRATIVE: CASE EVENT DATE: 20190515
